FAERS Safety Report 10680957 (Version 1)
Quarter: 2014Q4

REPORT INFORMATION
  Report Type: Spontaneous
  Country: US (occurrence: US)
  Receive Date: 20141229
  Receipt Date: 20141229
  Transmission Date: 20150529
  Serious: No
  Sender: FDA-Public Use
  Company Number: US-BAUSCH-SYM-2014-18583

PATIENT
  Sex: Female

DRUGS (1)
  1. XENAZINE [Suspect]
     Active Substance: TETRABENAZINE
     Indication: CHOREA
     Dosage: 1 TABLET, TWICE DAILY
     Route: 048
     Dates: start: 20140128, end: 2014

REACTIONS (2)
  - Eye disorder [Recovering/Resolving]
  - Fatigue [Recovering/Resolving]
